FAERS Safety Report 4264867-2 (Version None)
Quarter: 2004Q1

REPORT INFORMATION
  Report Type: 
  Country: None (occurrence: None)
  Receive Date: 20040105
  Receipt Date: 20031223
  Transmission Date: 20041129
  Serious: Yes (Hospitalization)
  Sender: FDA-Public Use
  Company Number: HQWYE890623DEC03

PATIENT
  Age: 84 Year
  Sex: Female

DRUGS (12)
  1. BISOPROLOL FUMARATE [Suspect]
     Dosage: 10 MG 1X PER 1 DAY
     Route: 048
     Dates: start: 20010701
  2. FOSFOCIN (FOSFOMYCIN SODIUM, ) [Suspect]
     Dosage: 4 MG 2X PER 1 DAY
     Route: 042
     Dates: start: 20031114, end: 20031120
  3. LASIX [Suspect]
     Dosage: 40 MG 1X PER 1 DAY
     Route: 042
     Dates: start: 20031118, end: 20031120
  4. LASIX [Concomitant]
  5. LOVENOX [Concomitant]
  6. OMEPRAZOLE [Concomitant]
  7. NOCTRAN 10 (ACEPROMAZINE/ACEPROMETAZINE/CLORAZEPATE DIPOTASSIUM) [Concomitant]
  8. NITROGLYCERIN [Concomitant]
  9. ACETAMINOPHEN [Concomitant]
  10. FOLIC ACID [Concomitant]
  11. LEXOMIL (BROMAZEPAM) [Concomitant]
  12. ATHYMIL (MIANSERIN HYDROCHLORIDE) [Concomitant]

REACTIONS (5)
  - ATRIOVENTRICULAR BLOCK FIRST DEGREE [None]
  - CARDIAC FAILURE [None]
  - ELECTROCARDIOGRAM T WAVE INVERSION [None]
  - HYPOKALAEMIA [None]
  - VENTRICULAR HYPERTROPHY [None]
